FAERS Safety Report 21313908 (Version 1)
Quarter: 2022Q3

REPORT INFORMATION
  Report Type: Spontaneous
  Country: US (occurrence: US)
  Receive Date: 20220909
  Receipt Date: 20220909
  Transmission Date: 20221027
  Serious: No
  Sender: FDA-Public Use
  Company Number: US-PADAGIS-2022PAD00557

PATIENT

DRUGS (1)
  1. AMMONIUM LACTATE [Suspect]
     Active Substance: AMMONIUM LACTATE
     Indication: Dry skin
     Dosage: UNK
     Route: 065
     Dates: start: 202208, end: 202208

REACTIONS (2)
  - Confusional state [None]
  - Disorientation [None]

NARRATIVE: CASE EVENT DATE: 20220801
